FAERS Safety Report 7821764-0 (Version None)
Quarter: 2011Q4

REPORT INFORMATION
  Report Type: 
  Country: None (occurrence: None)
  Receive Date: 20111018
  Receipt Date: 20110310
  Transmission Date: 20120403
  Serious: No
  Sender: FDA-Public Use
  Company Number: US-ASTRAZENECA-2009SE13633

PATIENT
  Age: 79 Year
  Sex: Female
  Weight: 55.3 kg

DRUGS (11)
  1. SYMBICORT [Suspect]
     Dosage: 80/4.5 UG TWO PUFFS TWO TIMES A DAY
     Route: 055
     Dates: start: 20090821, end: 20090912
  2. SYMBICORT [Suspect]
     Dosage: TWO PUFFS TWO TIMES A DAY
     Route: 055
     Dates: start: 20090312
  3. SPIRIVA [Concomitant]
  4. SYMBICORT [Suspect]
     Dosage: 80/4.5 MCG TWO PUFFS TWICE DAILY
     Route: 055
     Dates: start: 20100617
  5. SYMBICORT [Suspect]
     Dosage: TWO PUFFS TWO TIMES A DAY
     Route: 055
     Dates: start: 20100707
  6. ALBUTEROL [Concomitant]
  7. SYMBICORT [Suspect]
     Indication: CHRONIC OBSTRUCTIVE PULMONARY DISEASE
     Dosage: 80/4.5 MCGS TWO PUFFS IN AM AND TWO PUFFS IN PM
     Route: 055
     Dates: start: 20080101, end: 20091201
  8. SYMBICORT [Suspect]
     Dosage: 80/4.5 UG TWO PUFFS TWO TIMES A DAY
     Route: 055
     Dates: start: 20090802, end: 20090821
  9. SYMBICORT [Suspect]
     Dosage: 80/4.5 MCG TWO PUFFS TWO TIMES A DAY
     Route: 055
     Dates: start: 20100920
  10. SYMBICORT [Suspect]
     Dosage: 80/4.5 UG TWO PUFFS TWO TIMES A DAY
     Route: 055
     Dates: start: 20090714, end: 20090802
  11. SYMBICORT [Suspect]
     Dosage: 80/4.5 MCG TWO PUFFS TWO TIMES A DAY
     Route: 055

REACTIONS (5)
  - DRUG INEFFECTIVE [None]
  - DYSPHONIA [None]
  - MALAISE [None]
  - ASTHENIA [None]
  - DYSPNOEA [None]
